FAERS Safety Report 7700755-4 (Version None)
Quarter: 2011Q3

REPORT INFORMATION
  Report Type: 
  Country: None (occurrence: None)
  Receive Date: 20110822
  Receipt Date: 20110810
  Transmission Date: 20111222
  Serious: Yes (Death, Hospitalization)
  Sender: FDA-Public Use
  Company Number: JP-ROCHE-682776

PATIENT
  Age: 64 Year
  Sex: Female

DRUGS (5)
  1. LEUCOVORIN CALCIUM [Suspect]
     Indication: COLON CANCER METASTATIC
     Dosage: UNCERTANTY
     Route: 041
     Dates: start: 20080301, end: 20080401
  2. AVASTIN [Suspect]
     Indication: COLON CANCER METASTATIC
     Dosage: UNCERTANTY
     Route: 041
     Dates: start: 20080301, end: 20080401
  3. FLUOROURACIL [Suspect]
     Dosage: UNCERTANITY. ROUTE: INTRAVENOUS BOLUS
     Route: 050
     Dates: start: 20080301, end: 20080401
  4. FLUOROURACIL [Suspect]
     Indication: COLON CANCER METASTATIC
     Dosage: UNCERTANITY, ROUTE: INTRAVENOUS DRIP
     Route: 050
     Dates: start: 20080301, end: 20080401
  5. IRINOTECAN HCL [Suspect]
     Indication: COLON CANCER METASTATIC
     Dosage: UNCERTANTY
     Route: 041
     Dates: start: 20080301, end: 20080401

REACTIONS (3)
  - LEUKOPENIA [None]
  - DISEASE PROGRESSION [None]
  - INTERSTITIAL LUNG DISEASE [None]
